FAERS Safety Report 5805601-1 (Version None)
Quarter: 2008Q3

REPORT INFORMATION
  Report Type: 
  Country: None (occurrence: None)
  Receive Date: 20080710
  Receipt Date: 20080626
  Transmission Date: 20090109
  Serious: Yes (Other)
  Sender: FDA-Public Use
  Company Number: US-ELI_LILLY_AND_COMPANY-US200712003035

PATIENT
  Sex: Female
  Weight: 54.286 kg

DRUGS (3)
  1. FORTEO [Suspect]
     Indication: OSTEOPOROSIS
     Dosage: 20 UG, DAILY (1/D)
     Dates: start: 20070327
  2. CALCIUM CITRATE W/VITAMIN D NOS [Concomitant]
  3. HYDROCHLOROTHIAZIDE [Concomitant]
     Dosage: 25 MG, UNK

REACTIONS (5)
  - HIP FRACTURE [None]
  - HUMERUS FRACTURE [None]
  - LEUKAEMIA [None]
  - PSYCHIATRIC SYMPTOM [None]
  - RED CELL DISTRIBUTION WIDTH INCREASED [None]
